FAERS Safety Report 14009013 (Version 4)
Quarter: 2017Q4

REPORT INFORMATION
  Report Type: Spontaneous
  Country: CA (occurrence: CA)
  Receive Date: 20170925
  Receipt Date: 20171113
  Transmission Date: 20180321
  Serious: Yes (Hospitalization, Other)
  Sender: FDA-Public Use
  Company Number: CA-CELLTRION HEALTHCARE JAPAN K.K.-2017CA009298

PATIENT

DRUGS (2)
  1. INFLECTRA [Suspect]
     Active Substance: INFLIXIMAB-DYYB
     Indication: CROHN^S DISEASE
     Dosage: 250 MG CYCLIC EVERY 0, 2, 6 WEEKS, THEN EVERY 8 WEEKS
     Route: 042
     Dates: start: 20170630, end: 20170925
  2. PREDNISONE. [Concomitant]
     Active Substance: PREDNISONE
     Dosage: 40 MG DAILY WITH TAPER OF 5 MG PER WEEK INTRAVENOUSLY AND ORALLY

REACTIONS (9)
  - Small intestinal obstruction [Not Recovered/Not Resolved]
  - Product use issue [Unknown]
  - Abdominal pain upper [Unknown]
  - Condition aggravated [Not Recovered/Not Resolved]
  - Pain [Not Recovered/Not Resolved]
  - Therapeutic response shortened [Not Recovered/Not Resolved]
  - Oedema peripheral [Recovering/Resolving]
  - Anaemia [Unknown]
  - Gastrointestinal sounds abnormal [Recovering/Resolving]

NARRATIVE: CASE EVENT DATE: 2017
